FAERS Safety Report 19841393 (Version 2)
Quarter: 2021Q3

REPORT INFORMATION
  Report Type: Report from Study
  Country: US (occurrence: US)
  Receive Date: 20210915
  Receipt Date: 20210930
  Transmission Date: 20211014
  Serious: Yes (Hospitalization, Other)
  Sender: FDA-Public Use
  Company Number: US-TAKEDA-2021TUS056855

PATIENT
  Sex: Female

DRUGS (8)
  1. TEDUGLUTIDE [Suspect]
     Active Substance: TEDUGLUTIDE
     Indication: SHORT-BOWEL SYNDROME
  2. TEDUGLUTIDE [Suspect]
     Active Substance: TEDUGLUTIDE
     Indication: SHORT-BOWEL SYNDROME
  3. TEDUGLUTIDE [Suspect]
     Active Substance: TEDUGLUTIDE
     Indication: DYSPEPSIA
     Dosage: 3.145 MILLIGRAM, QD
     Route: 058
     Dates: start: 20210814
  4. TEDUGLUTIDE [Suspect]
     Active Substance: TEDUGLUTIDE
     Indication: SHORT-BOWEL SYNDROME
  5. TEDUGLUTIDE [Suspect]
     Active Substance: TEDUGLUTIDE
     Indication: DYSPEPSIA
     Dosage: 3.145 MILLIGRAM, QD
     Route: 058
     Dates: start: 20210814
  6. TEDUGLUTIDE [Suspect]
     Active Substance: TEDUGLUTIDE
     Indication: SHORT-BOWEL SYNDROME
  7. TEDUGLUTIDE [Suspect]
     Active Substance: TEDUGLUTIDE
     Indication: DYSPEPSIA
     Dosage: 3.145 MILLIGRAM, QD
     Route: 058
     Dates: start: 20210814
  8. TEDUGLUTIDE [Suspect]
     Active Substance: TEDUGLUTIDE
     Indication: DYSPEPSIA
     Dosage: 3.145 MILLIGRAM, QD
     Route: 058
     Dates: start: 20210814

REACTIONS (2)
  - Pneumonia [Unknown]
  - Joint swelling [Unknown]
